FAERS Safety Report 10041033 (Version 1)
Quarter: 2014Q1

REPORT INFORMATION
  Report Type: Spontaneous
  Country: US (occurrence: US)
  Receive Date: 20140327
  Receipt Date: 20140327
  Transmission Date: 20141002
  Serious: Yes (Other)
  Sender: FDA-Public Use
  Company Number: US-PFIZER INC-2014082916

PATIENT
  Sex: Male

DRUGS (2)
  1. XANAX [Suspect]
     Dosage: UNK
  2. PROTONIX [Suspect]
     Dosage: UNK

REACTIONS (20)
  - Neoplasm malignant [Unknown]
  - Pulmonary embolism [Unknown]
  - Epilepsy [Unknown]
  - Convulsion [Unknown]
  - Pancreatitis chronic [Unknown]
  - Deafness [Unknown]
  - Haemorrhage [Unknown]
  - Road traffic accident [Unknown]
  - Angiopathy [Unknown]
  - Gastritis [Unknown]
  - Hypertension [Unknown]
  - Psychotic disorder [Unknown]
  - Back pain [Unknown]
  - Pain [Unknown]
  - Dyspnoea [Unknown]
  - Chest pain [Unknown]
  - Laceration [Unknown]
  - Gastrooesophageal reflux disease [Unknown]
  - Anxiety [Unknown]
  - Constipation [Unknown]
